FAERS Safety Report 25953242 (Version 1)
Quarter: 2025Q4

REPORT INFORMATION
  Report Type: Spontaneous
  Country: US (occurrence: US)
  Receive Date: 20251023
  Receipt Date: 20251023
  Transmission Date: 20260118
  Serious: Yes (Other)
  Sender: VERTEX
  Company Number: US-VERTEX PHARMACEUTICALS-2025-017447

PATIENT
  Sex: Female

DRUGS (2)
  1. TRIKAFTA [Suspect]
     Active Substance: ELEXACAFTOR\IVACAFTOR\TEZACAFTOR
     Indication: Cystic fibrosis
     Dosage: UNKNOWN DOSAGE REGIMEN
     Route: 048
  2. SODIUM [Concomitant]
     Active Substance: SODIUM

REACTIONS (8)
  - Nephrolithiasis [Recovered/Resolved]
  - Weight increased [Recovered/Resolved]
  - COVID-19 [Unknown]
  - Swelling face [Unknown]
  - Teeth brittle [Unknown]
  - Mental impairment [Recovering/Resolving]
  - Eating disorder [Recovering/Resolving]
  - Body dysmorphic disorder [Recovering/Resolving]

NARRATIVE: CASE EVENT DATE: 20231101
